FAERS Safety Report 25113385 (Version 1)
Quarter: 2025Q1

REPORT INFORMATION
  Report Type: Spontaneous
  Country: PT (occurrence: PT)
  Receive Date: 20250324
  Receipt Date: 20250324
  Transmission Date: 20250409
  Serious: Yes (Life-Threatening, Other)
  Sender: Haleon PLC
  Company Number: PT-INFARMED-J202501-625

PATIENT
  Age: 63 Year
  Sex: Male

DRUGS (1)
  1. DICLOFENAC [Suspect]
     Active Substance: DICLOFENAC
     Indication: Neck pain
     Route: 048
     Dates: start: 20210226, end: 20210226

REACTIONS (5)
  - Throat tightness [Recovered/Resolved]
  - Angioedema [Recovered/Resolved]
  - Erythema [Recovered/Resolved]
  - Dyspnoea [Recovered/Resolved]
  - Pruritus [Recovered/Resolved]

NARRATIVE: CASE EVENT DATE: 20210226
